FAERS Safety Report 4738608-6 (Version None)
Quarter: 2005Q3

REPORT INFORMATION
  Report Type: 
  Country: None (occurrence: None)
  Receive Date: 20050802
  Receipt Date: 20050720
  Transmission Date: 20060218
  Serious: Yes (Other)
  Sender: FDA-Public Use
  Company Number: 200410504BBE

PATIENT
  Age: 24 Year
  Sex: Female

DRUGS (10)
  1. HYPRHO-D [Suspect]
     Indication: PREGNANCY
  2. INJECTABLE GLOBULIN (JOHNSON AND JOHNSON) (IMMUNOGLOBULIN HUMAN NORMAL [Suspect]
  3. IMMUNE GLOBULIN (HUMAN) [Suspect]
  4. ORTHO-NOVUM [Concomitant]
  5. DESOGEN [Concomitant]
  6. METROGEL [Concomitant]
  7. CILEST [Concomitant]
  8. EXCEDRIN (MIGRAINE) [Concomitant]
  9. ALPRAZOLAM [Concomitant]
  10. CELEXA [Concomitant]

REACTIONS (8)
  - ADVERSE EVENT [None]
  - ANXIETY [None]
  - DEPRESSION [None]
  - DRUG EXPOSURE DURING PREGNANCY [None]
  - HEADACHE [None]
  - INSOMNIA [None]
  - STRESS [None]
  - VAGINITIS BACTERIAL [None]
